FAERS Safety Report 9384977 (Version 1)
Quarter: 2013Q3

REPORT INFORMATION
  Report Type: Spontaneous
  Country: US (occurrence: US)
  Receive Date: 20130705
  Receipt Date: 20130705
  Transmission Date: 20140515
  Serious: No
  Sender: FDA-Public Use
  Company Number: US-GLAXOSMITHKLINE-A1020051A

PATIENT
  Age: 28 Year
  Sex: Female
  Weight: 47.7 kg

DRUGS (8)
  1. BENLYSTA [Suspect]
     Indication: SYSTEMIC LUPUS ERYTHEMATOSUS
     Dosage: 10MGK SINGLE DOSE
     Route: 042
     Dates: start: 20130411
  2. ENALAPRIL [Concomitant]
  3. MYCOPHENOLATE [Concomitant]
  4. HYDROXYCHLOROQUINE [Concomitant]
  5. PREDNISOLONE [Concomitant]
  6. SIMVASTATIN [Concomitant]
  7. VITAMIN D [Concomitant]
  8. TIZANIDINE [Concomitant]

REACTIONS (5)
  - Infusion site reaction [Recovered/Resolved]
  - Arthralgia [Recovered/Resolved]
  - Peripheral coldness [Recovered/Resolved]
  - Paraesthesia [Recovered/Resolved]
  - Rash macular [Recovered/Resolved]
